FAERS Safety Report 4763693-5 (Version None)
Quarter: 2005Q3

REPORT INFORMATION
  Report Type: 
  Country: None (occurrence: None)
  Receive Date: 20050908
  Receipt Date: 20020412
  Transmission Date: 20060218
  Serious: Yes (Hospitalization)
  Sender: FDA-Public Use
  Company Number: JP-GLAXOSMITHKLINE-B0265403A

PATIENT
  Age: 62 Year
  Sex: Female
  Weight: 51 kg

DRUGS (8)
  1. ALLOPURINOL [Suspect]
     Dosage: 100MG PER DAY
     Route: 048
     Dates: start: 19990623, end: 20001201
  2. CEFTAZIDIME [Suspect]
     Indication: BACTERIAL INFECTION
     Dosage: 1G TWICE PER DAY
     Route: 042
     Dates: start: 20001201, end: 20010109
  3. SULFAMETHOXAZOLE + TRIMETHOPRIM [Suspect]
     Dosage: 960MG PER DAY
     Route: 048
     Dates: start: 19991101, end: 20010101
  4. VANCOMYCIN [Suspect]
     Indication: BACTERIAL INFECTION
     Route: 042
     Dates: end: 20011113
  5. LACTOMIN [Concomitant]
     Indication: GASTROENTERITIS
     Dosage: 3G PER DAY
     Route: 048
     Dates: end: 20010104
  6. ALUMINIUM HYDROXIDE + MAGNESIUM HYDROXIDE [Concomitant]
     Indication: GASTRITIS
     Dosage: 30ML PER DAY
     Route: 048
     Dates: end: 20010104
  7. FLUCONAZOLE [Concomitant]
     Dosage: 400MG PER DAY
     Route: 042
     Dates: end: 20010108
  8. PIPERACILLIN SODIUM [Concomitant]
     Indication: BACTERIAL INFECTION
     Route: 042
     Dates: end: 20001220

REACTIONS (12)
  - ACUTE GENERALISED EXANTHEMATOUS PUSTULOSIS [None]
  - BACTERIAL INFECTION [None]
  - CYTOMEGALOVIRUS ANTIBODY POSITIVE [None]
  - CYTOMEGALOVIRUS ANTIGEN POSITIVE [None]
  - CYTOMEGALOVIRUS INFECTION [None]
  - DISSEMINATED INTRAVASCULAR COAGULATION [None]
  - EOSINOPHILIA [None]
  - HEPATIC FUNCTION ABNORMAL [None]
  - LEUKOCYTOSIS [None]
  - PYREXIA [None]
  - RASH [None]
  - THROMBOCYTOPENIA [None]
